FAERS Safety Report 5008175-0 (Version None)
Quarter: 2006Q2

REPORT INFORMATION
  Report Type: 
  Country: None (occurrence: None)
  Receive Date: 20060404
  Receipt Date: 20051121
  Transmission Date: 20061013
  Serious: Yes (Other)
  Sender: FDA-Public Use
  Company Number: 2005160418

PATIENT
  Sex: 0

DRUGS (2)
  1. GEODON [Suspect]
     Indication: BIPOLAR DISORDER
  2. DEPAKOTE [Suspect]
     Indication: BIPOLAR DISORDER
     Dosage: 750 MG

REACTIONS (1)
  - CONVULSION [None]
